FAERS Safety Report 4708129-5 (Version None)
Quarter: 2005Q3

REPORT INFORMATION
  Report Type: 
  Country: None (occurrence: None)
  Receive Date: 20050707
  Receipt Date: 20050624
  Transmission Date: 20060218
  Serious: Yes (Hospitalization, Other)
  Sender: FDA-Public Use
  Company Number: JP-JNJFOC-20050402050

PATIENT
  Sex: Male

DRUGS (8)
  1. ITRIZOLE [Suspect]
     Route: 049
  2. ITRIZOLE [Suspect]
     Route: 049
  3. ITRIZOLE [Suspect]
     Indication: ONYCHOMYCOSIS
     Route: 049
  4. AMLODIPINE BESILATE [Interacting]
     Indication: HYPERTENSION
     Route: 049
  5. VALSARTAN [Interacting]
     Indication: HYPERTENSION
     Route: 049
  6. FUROSEMIDE [Interacting]
     Indication: HYPERTENSION
     Route: 049
  7. DILAZEP HYDROCHLORIDE [Concomitant]
     Indication: ANGINA PECTORIS
     Route: 049
  8. VOGLIBOSE [Concomitant]
     Indication: DIABETES MELLITUS
     Route: 049

REACTIONS (3)
  - CARDIAC FAILURE CONGESTIVE [None]
  - DRUG INTERACTION [None]
  - RENAL FAILURE ACUTE [None]
